FAERS Safety Report 8891950 (Version 1)
Quarter: 2012Q4

REPORT INFORMATION
  Report Type: 
  Country: US (occurrence: None)
  Receive Date: 20121105
  Receipt Date: 20121105
  Transmission Date: 20130627
  Serious: Yes (Hospitalization)
  Sender: FDA-Public Use
  Company Number: None

PATIENT
  Sex: Male
  Weight: 57.9 kg

DRUGS (6)
  1. PEG-L-ASPARAGINASE [Suspect]
  2. VINCRISTINE SULFATE [Suspect]
  3. LORAZEPAM [Concomitant]
  4. MORPHINE [Concomitant]
  5. ONDANSETRON [Concomitant]
  6. FOLIC ACID [Concomitant]

REACTIONS (2)
  - Pyrexia [None]
  - Hypotension [None]
